FAERS Safety Report 9277028 (Version 1)
Quarter: 2013Q2

REPORT INFORMATION
  Report Type: Spontaneous
  Country: IT (occurrence: IT)
  Receive Date: 20130507
  Receipt Date: 20130507
  Transmission Date: 20140414
  Serious: Yes (Hospitalization, Other)
  Sender: FDA-Public Use
  Company Number: IT-GILEAD-2013-0069376

PATIENT
  Age: 69 Year
  Sex: Male

DRUGS (4)
  1. VIREAD [Suspect]
     Indication: HEPATITIS B
     Dosage: 245 MG, QD
     Route: 048
     Dates: start: 20090218, end: 20121112
  2. DIBASE [Concomitant]
     Dosage: 50 GTT, UNK
  3. LANSOX [Concomitant]
     Dosage: 1 DF, QD
     Route: 048
  4. PATROL [Concomitant]
     Dosage: 1 DF, QD
     Route: 048

REACTIONS (2)
  - Osteoporosis [Unknown]
  - Fanconi syndrome acquired [Recovering/Resolving]
